FAERS Safety Report 4297410-2 (Version None)
Quarter: 2004Q1

REPORT INFORMATION
  Report Type: 
  Country: None (occurrence: None)
  Receive Date: 20040213
  Receipt Date: 20040203
  Transmission Date: 20041129
  Serious: Yes (Death, Hospitalization)
  Sender: FDA-Public Use
  Company Number: US-JNJFOC-20040104579

PATIENT
  Age: 53 Year
  Sex: Male
  Weight: 68.9467 kg

DRUGS (3)
  1. REMICADE [Suspect]
     Indication: CROHN'S DISEASE
     Dosage: 1 IN 1 DAY, INTRAVENOUS
     Route: 042
     Dates: start: 20040119
  2. PREDNISONE [Concomitant]
  3. METOPROLOL SUCCINATE [Concomitant]

REACTIONS (8)
  - ARTHRALGIA [None]
  - CARDIO-RESPIRATORY ARREST [None]
  - HEART RATE INCREASED [None]
  - LETHARGY [None]
  - MEDICATION ERROR [None]
  - MYALGIA [None]
  - PLATELET COUNT DECREASED [None]
  - SEPSIS [None]
